FAERS Safety Report 12329009 (Version 3)
Quarter: 2016Q3

REPORT INFORMATION
  Report Type: Spontaneous
  Country: FI (occurrence: FI)
  Receive Date: 20160503
  Receipt Date: 20160816
  Transmission Date: 20161109
  Serious: Yes (Disabling, Other)
  Sender: FDA-Public Use
  Company Number: PHHY2016FI028176

PATIENT
  Sex: Female

DRUGS (12)
  1. SANDIMMUN NEORAL [Suspect]
     Active Substance: CYCLOSPORINE
     Indication: IRITIS
  2. TOCILIZUMAB [Concomitant]
     Active Substance: TOCILIZUMAB
     Indication: PRODUCT USED FOR UNKNOWN INDICATION
     Dosage: 300 MG, EVERY FOUR WEEKS
     Route: 065
     Dates: start: 201511, end: 201607
  3. ADALIMUMAB [Concomitant]
     Active Substance: ADALIMUMAB
     Indication: PRODUCT USED FOR UNKNOWN INDICATION
     Dosage: 20 MG, EVERY OTHER WEEK
     Route: 065
     Dates: start: 200902, end: 201010
  4. ADALIMUMAB [Concomitant]
     Active Substance: ADALIMUMAB
     Dosage: UNK
     Route: 065
     Dates: start: 201101, end: 201105
  5. INFLIXIMAB [Concomitant]
     Active Substance: INFLIXIMAB
     Indication: PRODUCT USED FOR UNKNOWN INDICATION
     Dosage: UNK
     Route: 065
     Dates: start: 200708, end: 200806
  6. SANDIMMUN NEORAL [Suspect]
     Active Substance: CYCLOSPORINE
     Indication: JUVENILE IDIOPATHIC ARTHRITIS
     Dosage: 25 MG, BID
     Route: 065
     Dates: start: 200806, end: 201505
  7. LEFLUNOMIDE. [Concomitant]
     Active Substance: LEFLUNOMIDE
     Indication: PRODUCT USED FOR UNKNOWN INDICATION
     Dosage: 20 MG, THREE TIMES PER WEEK
     Route: 065
  8. LEFLUNOMIDE. [Concomitant]
     Active Substance: LEFLUNOMIDE
     Dosage: 20 MG, FOUR TIMES PER WEEK
     Route: 065
  9. SANDIMMUN NEORAL [Suspect]
     Active Substance: CYCLOSPORINE
     Indication: UVEITIS
     Dosage: 50 MG, BID
     Route: 065
     Dates: start: 201505, end: 201602
  10. METHOTREXATE. [Concomitant]
     Active Substance: METHOTREXATE
     Indication: PRODUCT USED FOR UNKNOWN INDICATION
     Dosage: 10 MG, ONCE A WEEK
     Route: 058
     Dates: start: 200707, end: 201206
  11. ABATACEPT [Concomitant]
     Active Substance: ABATACEPT
     Dosage: UNK
     Route: 065
     Dates: end: 201511
  12. ABATACEPT [Concomitant]
     Active Substance: ABATACEPT
     Indication: PRODUCT USED FOR UNKNOWN INDICATION
     Dosage: 300 MG, EVERY FOUR WEEKS
     Route: 065
     Dates: start: 201105, end: 201108

REACTIONS (11)
  - Cataract [Unknown]
  - Immunosuppressant drug level decreased [Unknown]
  - Pupillary disorder [Unknown]
  - Vision blurred [Unknown]
  - Iris adhesions [Not Recovered/Not Resolved]
  - Anterior chamber disorder [Unknown]
  - Juvenile idiopathic arthritis [Recovered/Resolved]
  - Iritis [Recovered/Resolved]
  - Arthralgia [Recovered/Resolved]
  - Gait disturbance [Recovered/Resolved]
  - Product use issue [Unknown]

NARRATIVE: CASE EVENT DATE: 201102
